FAERS Safety Report 4322357-2 (Version None)
Quarter: 2004Q1

REPORT INFORMATION
  Report Type: 
  Country: None (occurrence: None)
  Receive Date: 20040322
  Receipt Date: 20040322
  Transmission Date: 20041129
  Serious: Yes (Hospitalization)
  Sender: FDA-Public Use
  Company Number: None

PATIENT
  Age: 35 Year
  Sex: Female
  Weight: 110.6777 kg

DRUGS (3)
  1. DECADRON [Suspect]
     Indication: BREAST CANCER METASTATIC
     Dosage: 8 MG BID
     Dates: start: 20020704
  2. DECADRON [Suspect]
     Indication: METASTASES TO CENTRAL NERVOUS SYSTEM
     Dosage: 8 MG BID
     Dates: start: 20020704
  3. DEXMETHYLPHENIDATE [Suspect]
     Dosage: 5 MG THREE BID
     Dates: start: 20020715

REACTIONS (10)
  - AMNESIA [None]
  - ASTHENIA [None]
  - DYSPNOEA EXERTIONAL [None]
  - FAECAL INCONTINENCE [None]
  - HYPOXIA [None]
  - NEOPLASM PROGRESSION [None]
  - OEDEMA PERIPHERAL [None]
  - SPINAL DISORDER [None]
  - URINARY INCONTINENCE [None]
  - VISION BLURRED [None]
